FAERS Safety Report 22134456 (Version 12)
Quarter: 2025Q2

REPORT INFORMATION
  Report Type: Report from Study
  Country: ZA (occurrence: ZA)
  Receive Date: 20230324
  Receipt Date: 20250403
  Transmission Date: 20250716
  Serious: Yes (Hospitalization, Other)
  Sender: TAKEDA
  Company Number: ZA-TAKEDA-2022TUS035286

PATIENT
  Age: 71 Year
  Sex: Female

DRUGS (5)
  1. VEDOLIZUMAB [Suspect]
     Active Substance: VEDOLIZUMAB
     Indication: Crohn^s disease
  2. VEDOLIZUMAB [Suspect]
     Active Substance: VEDOLIZUMAB
     Dosage: 300 MILLIGRAM, Q6WEEKS
  3. VEDOLIZUMAB [Suspect]
     Active Substance: VEDOLIZUMAB
     Dosage: 300 MILLIGRAM, Q4WEEKS
     Dates: start: 20220519
  4. VEDOLIZUMAB [Suspect]
     Active Substance: VEDOLIZUMAB
     Dosage: 300 MILLIGRAM, Q4WEEKS
  5. VEDOLIZUMAB [Suspect]
     Active Substance: VEDOLIZUMAB
     Dates: start: 20241129, end: 20250325

REACTIONS (22)
  - Crohn^s disease [Not Recovered/Not Resolved]
  - Renal impairment [Unknown]
  - Anal stenosis [Not Recovered/Not Resolved]
  - Dehydration [Unknown]
  - Illness [Recovered/Resolved]
  - Pain [Not Recovered/Not Resolved]
  - Arthralgia [Not Recovered/Not Resolved]
  - Oropharyngeal pain [Not Recovered/Not Resolved]
  - Fatigue [Not Recovered/Not Resolved]
  - Off label use [Unknown]
  - Inappropriate schedule of product administration [Recovered/Resolved]
  - Poor venous access [Recovered/Resolved]
  - Diarrhoea [Not Recovered/Not Resolved]
  - Laryngitis [Recovering/Resolving]
  - Therapy non-responder [Unknown]
  - Osteoporosis [Unknown]
  - Malnutrition [Unknown]
  - Malaise [Recovering/Resolving]
  - Nausea [Recovered/Resolved]
  - Bronchitis [Recovered/Resolved]
  - Pain in extremity [Recovered/Resolved]
  - Influenza [Recovering/Resolving]

NARRATIVE: CASE EVENT DATE: 20220519
